FAERS Safety Report 8720000 (Version 2)
Quarter: 2019Q4

REPORT INFORMATION
  Report Type: Spontaneous
  Country: IT (occurrence: IT)
  Receive Date: 20120813
  Receipt Date: 20191118
  Transmission Date: 20200122
  Serious: Yes (Hospitalization)
  Sender: FDA-Public Use
  Company Number: IT-PFIZER INC-2012190749

PATIENT
  Age: 77 Year
  Sex: Female

DRUGS (3)
  1. PHENYTOIN SODIUM. [Suspect]
     Active Substance: PHENYTOIN SODIUM
     Indication: EPILEPSY
     Dosage: 100 MG, DAILY (100 MG PER DAY)
  2. LEVOFLOXACIN. [Concomitant]
     Active Substance: LEVOFLOXACIN
     Indication: ARTHRITIS BACTERIAL
  3. AMOXICILLIN. [Concomitant]
     Active Substance: AMOXICILLIN
     Indication: ARTHRITIS BACTERIAL

REACTIONS (3)
  - Pyrexia [Recovered/Resolved]
  - Arthritis [Recovered/Resolved]
  - Cholestasis [Recovered/Resolved]
